FAERS Safety Report 9332041 (Version 3)
Quarter: 2013Q3

REPORT INFORMATION
  Report Type: Report from Study
  Country: US (occurrence: US)
  Receive Date: 20130605
  Receipt Date: 20130705
  Transmission Date: 20140515
  Serious: Yes (Hospitalization)
  Sender: FDA-Public Use
  Company Number: US-US-EMD SERONO, INC.-7214802

PATIENT
  Age: 32 Year
  Sex: Female

DRUGS (7)
  1. REBIF [Suspect]
     Indication: MULTIPLE SCLEROSIS
     Route: 058
  2. REBIF [Suspect]
     Route: 058
     Dates: start: 20130111, end: 20130530
  3. ZYRTEC                             /00884302/ [Concomitant]
     Indication: PRODUCT USED FOR UNKNOWN INDICATION
  4. RHINOCORT                          /00614601/ [Concomitant]
     Indication: PRODUCT USED FOR UNKNOWN INDICATION
  5. CALCIUM W/VITAMIN D                /00188401/ [Concomitant]
     Indication: PRODUCT USED FOR UNKNOWN INDICATION
  6. DORYX                              /00055701/ [Concomitant]
     Indication: PRODUCT USED FOR UNKNOWN INDICATION
  7. LEVOTHYROXINE [Concomitant]
     Indication: PRODUCT USED FOR UNKNOWN INDICATION

REACTIONS (8)
  - Thrombotic thrombocytopenic purpura [Recovering/Resolving]
  - Muscular weakness [Unknown]
  - Dysarthria [Unknown]
  - Muscular weakness [Unknown]
  - Speech disorder [Unknown]
  - Hypoaesthesia [Unknown]
  - Hypoaesthesia [Unknown]
  - Adenoviral upper respiratory infection [Unknown]
